FAERS Safety Report 24353050 (Version 1)
Quarter: 2024Q3

REPORT INFORMATION
  Report Type: Spontaneous
  Country: PL (occurrence: PL)
  Receive Date: 20240923
  Receipt Date: 20240923
  Transmission Date: 20241016
  Serious: No
  Sender: ROCHE
  Company Number: PL-SEATTLE GENETICS-2023SGN12322

PATIENT
  Sex: Female

DRUGS (3)
  1. TRASTUZUMAB [Interacting]
     Active Substance: TRASTUZUMAB
     Indication: Breast cancer female
     Route: 065
  2. TUKYSA [Interacting]
     Active Substance: TUCATINIB
     Indication: Breast cancer female
     Dosage: 600 MG, QD
     Route: 065
  3. CAPECITABINE [Interacting]
     Active Substance: CAPECITABINE
     Indication: Breast cancer female
     Route: 065

REACTIONS (3)
  - Aspartate aminotransferase increased [Unknown]
  - Drug interaction [Unknown]
  - Alanine aminotransferase increased [Unknown]

NARRATIVE: CASE EVENT DATE: 20221101
